FAERS Safety Report 18024320 (Version 1)
Quarter: 2020Q3

REPORT INFORMATION
  Report Type: Other
  Country: GB (occurrence: GB)
  Receive Date: 20200714
  Receipt Date: 20200714
  Transmission Date: 20201103
  Serious: Yes (Other)
  Sender: FDA-Public Use
  Company Number: GB-ROCHE-2638772

PATIENT
  Age: 66 Year
  Sex: Female

DRUGS (8)
  1. ACTILYSE [Suspect]
     Active Substance: ALTEPLASE
     Indication: MYOCARDIAL INFARCTION
     Dosage: 15 MG BOLUS THEN 150 MG OVER 30 MINUTES THEN 35 MG OVER 60 MINUTES
     Route: 065
  2. ACTILYSE [Suspect]
     Active Substance: ALTEPLASE
     Dosage: 15 MG BOLUS THEN 150 MG OVER 30 MINUTES THEN 35 MG OVER 60 MINUTES
     Route: 065
  3. TICLOPIDINE [Suspect]
     Active Substance: TICLOPIDINE
     Indication: MYOCARDIAL INFARCTION
     Dosage: 250 MG TWICE DAILY
     Route: 065
  4. ACTILYSE [Suspect]
     Active Substance: ALTEPLASE
     Dosage: 15 MG BOLUS THEN 150 MG OVER 30 MINUTES THEN 35 MG OVER 60 MINUTES
     Route: 065
  5. ASPIRIN [ACETYLSALICYLIC ACID] [Suspect]
     Active Substance: ASPIRIN
     Indication: MYOCARDIAL INFARCTION
     Dosage: 150 MG
     Route: 065
  6. STREPTOKINASE [Suspect]
     Active Substance: STREPTOKINASE
     Indication: MYOCARDIAL INFARCTION
     Dosage: 1.5 MILLION UNITS WAS GIVEN OVER 60 MINUTES VIA AN INTRAVENOUS CANNULA IN THE RIGHT HAND
     Route: 042
  7. HEPARIN LEO [Suspect]
     Active Substance: HEPARIN SODIUM
     Indication: MYOCARDIAL INFARCTION
     Dosage: 5000 UNITS INTRAVENOUS BOLUS AND THEN 1000 UNITS INTRAVENOUSLY PER HOUR
     Route: 042
  8. HEPARIN LEO [Suspect]
     Active Substance: HEPARIN SODIUM
     Dosage: 5000 UNITS INTRAVENOUS BOLUS AND THEN 1000 UNITS INTRAVENOUSLY PER HOUR
     Route: 042

REACTIONS (1)
  - Compartment syndrome [Recovered/Resolved]
